FAERS Safety Report 6082469-2 (Version None)
Quarter: 2009Q1

REPORT INFORMATION
  Report Type: 
  Country: None (occurrence: None)
  Receive Date: 20090130
  Receipt Date: 20081119
  Transmission Date: 20090719
  Serious: Yes (Hospitalization)
  Sender: FDA-Public Use
  Company Number: 8039725

PATIENT
  Age: 78 Year
  Sex: Female
  Weight: 63.6 kg

DRUGS (3)
  1. KEPPRA [Suspect]
     Indication: PETIT MAL EPILEPSY
     Dosage: 500 MG /D PO
     Route: 048
     Dates: start: 20061101, end: 20081113
  2. KEPPRA [Suspect]
     Indication: PETIT MAL EPILEPSY
     Dosage: 1000 MG
     Dates: start: 20081113
  3. LISINOPRIL [Concomitant]

REACTIONS (2)
  - GRAND MAL CONVULSION [None]
  - PERSONALITY DISORDER [None]
